FAERS Safety Report 8885372 (Version 2)
Quarter: 2012Q4

REPORT INFORMATION
  Report Type: 
  Country: RU (occurrence: RU)
  Receive Date: 20121101
  Receipt Date: 20121116
  Transmission Date: 20130627
  Serious: Yes (Death, Life-Threatening)
  Sender: FDA-Public Use
  Company Number: RU-ROCHE-1151180

PATIENT
  Age: 35 Year
  Sex: Male

DRUGS (1)
  1. FUZEON [Suspect]
     Indication: HIV INFECTION
     Route: 058
     Dates: start: 20121011, end: 20121026

REACTIONS (2)
  - Anaemia [Recovering/Resolving]
  - Tuberculosis [Fatal]
